FAERS Safety Report 7130003-8 (Version None)
Quarter: 2010Q4

REPORT INFORMATION
  Report Type: 
  Country: None (occurrence: None)
  Receive Date: 20101201
  Receipt Date: 20101118
  Transmission Date: 20110411
  Serious: Yes (Other)
  Sender: FDA-Public Use
  Company Number: US-BIOGENIDEC-2010BI015710

PATIENT
  Age: 24 Year
  Sex: Female
  Weight: 62 kg

DRUGS (4)
  1. TYSABRI [Suspect]
     Indication: MULTIPLE SCLEROSIS
     Route: 042
     Dates: start: 20100409, end: 20100409
  2. TYSABRI [Suspect]
     Route: 042
     Dates: start: 20101006, end: 20101006
  3. ALEVE (CAPLET) [Concomitant]
  4. MEDROL [Concomitant]
     Dates: start: 20100228

REACTIONS (1)
  - IDIOPATHIC THROMBOCYTOPENIC PURPURA [None]
